FAERS Safety Report 4568469-X (Version None)
Quarter: 2005Q1

REPORT INFORMATION
  Report Type: 
  Country: None (occurrence: None)
  Receive Date: 20050131
  Receipt Date: 20050117
  Transmission Date: 20050727
  Serious: Yes (Hospitalization, Other)
  Sender: FDA-Public Use
  Company Number: 2005014066

PATIENT
  Sex: Male
  Weight: 127.0072 kg

DRUGS (4)
  1. BEXTRA [Suspect]
     Indication: INTERVERTEBRAL DISC DEGENERATION
     Dosage: 20 MG (20 MG, 1 IN 1 D), ORAL
     Route: 048
     Dates: start: 20020101, end: 20021101
  2. BEXTRA [Suspect]
     Indication: OSTEOARTHRITIS
     Dosage: 20 MG (20 MG, 1 IN 1 D), ORAL
     Route: 048
     Dates: start: 20020101, end: 20021101
  3. PRAVASTATIN SODIUM [Suspect]
     Indication: BLOOD CHOLESTEROL
     Dates: start: 20030101
  4. HEPAGRISEVIT FORTE-N TABLET (CYANOCOBALAMIN, FOLIC ACID, PYRIDOXINE HY [Suspect]
     Indication: CARDIAC ENZYMES INCREASED
     Dates: start: 20030101

REACTIONS (6)
  - LUNG INJURY [None]
  - PLEURAL EFFUSION [None]
  - RASH ERYTHEMATOUS [None]
  - RASH MACULO-PAPULAR [None]
  - RASH PRURITIC [None]
  - SCAR [None]
